FAERS Safety Report 12662760 (Version 1)
Quarter: 2016Q3

REPORT INFORMATION
  Report Type: Spontaneous
  Country: CY (occurrence: CY)
  Receive Date: 20160818
  Receipt Date: 20160818
  Transmission Date: 20161109
  Serious: Yes (Death, Hospitalization)
  Sender: FDA-Public Use
  Company Number: CY-CIPLA LTD.-2016CY17232

PATIENT

DRUGS (6)
  1. ETIZOLAM [Suspect]
     Active Substance: ETIZOLAM
     Dosage: UNK
     Route: 065
  2. MDPV [Suspect]
     Active Substance: METHYLENEDIOXYPYROVALERONE HYDROCHLORIDE
     Dosage: UNK
     Route: 065
  3. MIRTAZAPINE. [Suspect]
     Active Substance: MIRTAZAPINE
     Dosage: UNK
     Route: 065
  4. OLANZAPINE. [Suspect]
     Active Substance: OLANZAPINE
     Dosage: UNK
     Route: 065
  5. PENTEDRONE [Suspect]
     Active Substance: PENTEDRONE
     Dosage: UNK
     Route: 065
  6. EPHEDRINE. [Suspect]
     Active Substance: EPHEDRINE
     Dosage: UNK
     Route: 065

REACTIONS (14)
  - Kidney congestion [None]
  - Toxicity to various agents [Fatal]
  - Hepatic congestion [None]
  - Cerebral congestion [None]
  - Hepatic steatosis [None]
  - Spleen congestion [None]
  - Myocardial infarction [Fatal]
  - Erythema [None]
  - Loss of consciousness [Unknown]
  - Oedema peripheral [None]
  - Brain oedema [None]
  - Pulmonary oedema [None]
  - Pulmonary congestion [None]
  - Cardiac hypertrophy [None]
